FAERS Safety Report 20003366 (Version 1)
Quarter: 2021Q4

REPORT INFORMATION
  Report Type: Spontaneous
  Country: US (occurrence: US)
  Receive Date: 20211027
  Receipt Date: 20211027
  Transmission Date: 20220303
  Serious: Yes (Other)
  Sender: FDA-Public Use
  Company Number: US-PFIZER INC-202101389829

PATIENT
  Age: 25 Year
  Sex: Male
  Weight: 54.3 kg

DRUGS (2)
  1. VIAGRA [Suspect]
     Active Substance: SILDENAFIL CITRATE
     Dosage: UNK
  2. PLAQUENIL [Suspect]
     Active Substance: HYDROXYCHLOROQUINE SULFATE
     Dosage: UNK

REACTIONS (7)
  - Penis disorder [Unknown]
  - Hypoaesthesia [Unknown]
  - Dizziness [Unknown]
  - Sensation of blood flow [Unknown]
  - Erection increased [Unknown]
  - Penile swelling [Unknown]
  - Skin striae [Unknown]
